FAERS Safety Report 6946045-9 (Version None)
Quarter: 2010Q3

REPORT INFORMATION
  Report Type: 
  Country: None (occurrence: None)
  Receive Date: 20100827
  Receipt Date: 20100215
  Transmission Date: 20110219
  Serious: No
  Sender: FDA-Public Use
  Company Number: A0844510A

PATIENT
  Age: 65 Year
  Sex: Male

DRUGS (4)
  1. ACYCLOVIR SODIUM [Suspect]
     Dosage: 400MG TWICE PER DAY
     Route: 048
     Dates: start: 20060801
  2. BACTRIM DS [Concomitant]
  3. OMEPRAZOLE [Concomitant]
  4. CELEBREX [Concomitant]

REACTIONS (1)
  - THERAPEUTIC RESPONSE UNEXPECTED [None]
